FAERS Safety Report 9248762 (Version 1)
Quarter: 2013Q2

REPORT INFORMATION
  Report Type: Spontaneous
  Country: US (occurrence: None)
  Receive Date: 20130419
  Receipt Date: 20130419
  Transmission Date: 20140414
  Serious: Yes (Other)
  Sender: FDA-Public Use
  Company Number: None

PATIENT
  Age: 49 Year
  Sex: Male

DRUGS (1)
  1. XTANDI 40MG [Suspect]
     Indication: NEOPLASM MALIGNANT
     Route: 048
     Dates: start: 20130125

REACTIONS (3)
  - Myalgia [None]
  - Fatigue [None]
  - Hot flush [None]
